FAERS Safety Report 21747528 (Version 1)
Quarter: 2022Q4

REPORT INFORMATION
  Report Type: Spontaneous
  Country: US (occurrence: US)
  Receive Date: 20221219
  Receipt Date: 20221219
  Transmission Date: 20230113
  Serious: No
  Sender: FDA-Public Use
  Company Number: US-NOVEN PHARMACEUTICALS, INC.-2022-NOV-US000164

PATIENT
  Sex: Female

DRUGS (1)
  1. ESTRADIOL [Suspect]
     Active Substance: ESTRADIOL
     Indication: Menopause
     Dosage: 0.075 MG, UNK
     Route: 062
     Dates: start: 2018

REACTIONS (12)
  - Vaginal discharge [Unknown]
  - Stress [Not Recovered/Not Resolved]
  - Unevaluable event [Not Recovered/Not Resolved]
  - Postmenopausal haemorrhage [Unknown]
  - Abdominal pain [Unknown]
  - Back pain [Unknown]
  - Headache [Not Recovered/Not Resolved]
  - Visual impairment [Not Recovered/Not Resolved]
  - Pain in extremity [Not Recovered/Not Resolved]
  - Fatigue [Not Recovered/Not Resolved]
  - Insomnia [Not Recovered/Not Resolved]
  - Product adhesion issue [Recovered/Resolved]

NARRATIVE: CASE EVENT DATE: 20220101
